FAERS Safety Report 11557603 (Version 3)
Quarter: 2016Q3

REPORT INFORMATION
  Report Type: Report from Study
  Country: AU (occurrence: AU)
  Receive Date: 20150926
  Receipt Date: 20160919
  Transmission Date: 20161109
  Serious: Yes (Other)
  Sender: FDA-Public Use
  Company Number: PHHY2015AU113143

PATIENT
  Sex: Female

DRUGS (1)
  1. SANDOSTATIN LAR DEPOT [Suspect]
     Active Substance: OCTREOTIDE ACETATE
     Indication: CARCINOID SYNDROME
     Dosage: 30 MG, UNK
     Route: 030

REACTIONS (5)
  - Contusion [Recovering/Resolving]
  - Chest wall tumour [Recovering/Resolving]
  - Chest pain [Recovering/Resolving]
  - Bone neoplasm [Unknown]
  - Tumour pain [Unknown]
